FAERS Safety Report 9716503 (Version 1)
Quarter: 2013Q4

REPORT INFORMATION
  Report Type: Spontaneous
  Country: GB (occurrence: GB)
  Receive Date: 20131127
  Receipt Date: 20131127
  Transmission Date: 20140711
  Serious: Yes (Disabling)
  Sender: FDA-Public Use
  Company Number: GB-BRISTOL-MYERS SQUIBB COMPANY-19827377

PATIENT
  Age: 85 Year
  Sex: Male
  Weight: 73 kg

DRUGS (7)
  1. METFORMIN HCL [Suspect]
     Indication: TYPE 2 DIABETES MELLITUS
     Dosage: 1 DF: 500 NOS TWO IN THE MORNING, TWO IN THE NIGHT, ONE IN THE MID DAY
     Dates: start: 2002
  2. CANDESARTAN [Concomitant]
     Indication: HYPERTENSION
     Dosage: 2 MG 1/1 D
     Dates: start: 20020402
  3. BENDROFLUMETHIAZIDE [Concomitant]
     Indication: HYPERTENSION
     Dates: start: 20040721
  4. WARFARIN [Concomitant]
     Indication: ATRIAL FIBRILLATION
     Dosage: AS DIRECTED?1 MG, 3 MG
     Dates: start: 20050524
  5. VITAMIN B12 [Concomitant]
     Indication: VITAMIN B12 DEFICIENCY
     Dates: start: 20050506
  6. MOVICOL [Concomitant]
     Indication: CONSTIPATION
     Dates: start: 20130402
  7. BISOPROLOL [Concomitant]
     Indication: BLOOD PRESSURE INCREASED
     Dates: start: 20130508

REACTIONS (2)
  - Balance disorder [Not Recovered/Not Resolved]
  - Blood creatinine increased [Unknown]
